FAERS Safety Report 4282633-9 (Version None)
Quarter: 2004Q1

REPORT INFORMATION
  Report Type: 
  Country: None (occurrence: None)
  Receive Date: 20040130
  Receipt Date: 20030103
  Transmission Date: 20041129
  Serious: No
  Sender: FDA-Public Use
  Company Number: US-BRISTOL-MYERS SQUIBB COMPANY-12150322

PATIENT
  Sex: Male

DRUGS (1)
  1. SERZONE [Suspect]
     Dosage: STOPPED ^ABOUT 1 + 1 1/2 MONTHS AGO^
     Dates: end: 20020101

REACTIONS (3)
  - ARTHRALGIA [None]
  - BACK PAIN [None]
  - HEADACHE [None]
